FAERS Safety Report 20780140 (Version 1)
Quarter: 2022Q2

REPORT INFORMATION
  Report Type: Other
  Country: CA (occurrence: CA)
  Receive Date: 20220503
  Receipt Date: 20220503
  Transmission Date: 20220721
  Serious: Yes (Other)
  Sender: FDA-Public Use
  Company Number: CA-CELLTRION INC.-2022CA005445

PATIENT

DRUGS (5)
  1. RITUXIMAB [Suspect]
     Active Substance: RITUXIMAB
     Indication: Rheumatoid arthritis
     Dosage: 1000.0 MILLIGRAM
     Route: 041
  2. IBUPROFEN [Concomitant]
     Active Substance: IBUPROFEN
  3. LEFLUNOMIDE [Concomitant]
     Active Substance: LEFLUNOMIDE
  4. ORENCIA [Concomitant]
     Active Substance: ABATACEPT
     Route: 042
  5. PROGESTERONE [Concomitant]
     Active Substance: PROGESTERONE
     Indication: Menopausal symptoms

REACTIONS (3)
  - Adenomyosis [Unknown]
  - Intra-abdominal fluid collection [Unknown]
  - Pelvic mass [Unknown]
